FAERS Safety Report 5532719-3 (Version None)
Quarter: 2007Q4

REPORT INFORMATION
  Report Type: 
  Country: None (occurrence: None)
  Receive Date: 20071119
  Receipt Date: 20071015
  Transmission Date: 20080405
  Serious: No
  Sender: FDA-Public Use
  Company Number: TPA2007A01771

PATIENT
  Age: 55 Year
  Sex: Female
  Weight: 78.9259 kg

DRUGS (3)
  1. ROZEREM [Suspect]
     Indication: SLEEP DISORDER
     Dosage: 8 MG, QHS, PER ORAL
     Route: 048
     Dates: start: 20070817
  2. GLUCOPHAGE [Concomitant]
  3. NATUREMAID DIABETES HEALTH PACK (DRUG USED IN DIABETES) [Concomitant]

REACTIONS (3)
  - BLOOD GLUCOSE DECREASED [None]
  - PALPITATIONS [None]
  - POOR QUALITY SLEEP [None]
